FAERS Safety Report 16185315 (Version 2)
Quarter: 2019Q2

REPORT INFORMATION
  Report Type: Spontaneous
  Country: US (occurrence: US)
  Receive Date: 20190411
  Receipt Date: 20190530
  Transmission Date: 20190711
  Serious: Yes (Hospitalization)
  Sender: FDA-Public Use
  Company Number: US-PROCTER+GAMBLE-GS19037256

PATIENT
  Age: 27 Year
  Sex: Male

DRUGS (1)
  1. DEXTROMETHORPHAN [Suspect]
     Active Substance: DEXTROMETHORPHAN
     Dosage: CONSUMED 4 BOTTLES, 150 ML EACH  FOR A TOTAL OF 600 ML
     Route: 048

REACTIONS (15)
  - Overdose [Recovered/Resolved]
  - Intestinal mucosal atrophy [Recovered/Resolved]
  - Colitis ischaemic [Recovered/Resolved]
  - Biopsy colon abnormal [Recovered/Resolved]
  - Haematochezia [Recovered/Resolved]
  - Gastrointestinal wall thickening [Recovered/Resolved]
  - Abdominal pain [Recovered/Resolved]
  - Gastrointestinal mucosal necrosis [Recovered/Resolved]
  - Drug screen positive [Recovered/Resolved]
  - White blood cell count increased [Recovered/Resolved]
  - Gastrointestinal sounds abnormal [Recovered/Resolved]
  - Diarrhoea haemorrhagic [Recovered/Resolved]
  - Mucosal inflammation [Recovered/Resolved]
  - Leukocytosis [Recovered/Resolved]
  - Abdominal tenderness [Recovered/Resolved]
